FAERS Safety Report 9715694 (Version 1)
Quarter: 2013Q4

REPORT INFORMATION
  Report Type: Spontaneous
  Country: GB (occurrence: GB)
  Receive Date: 20131127
  Receipt Date: 20131127
  Transmission Date: 20140711
  Serious: Yes (Other)
  Sender: FDA-Public Use
  Company Number: GB-ACCORD-020415

PATIENT
  Age: 74 Year
  Sex: Male
  Weight: 66.68 kg

DRUGS (8)
  1. ATENOLOL [Concomitant]
     Dates: start: 20130729
  2. OMEPRAZOLE [Concomitant]
     Dates: start: 20130729
  3. SIMVASTATIN [Concomitant]
     Dates: start: 20130729
  4. ALFUZOSIN [Concomitant]
     Dates: start: 20130729
  5. FINASTERIDE [Concomitant]
     Dates: start: 20130729
  6. LISINOPRIL [Suspect]
     Indication: PRODUCT USED FOR UNKNOWN INDICATION
     Route: 048
     Dates: start: 20131014
  7. BENDROFLUMETHIAZIDE [Concomitant]
     Dates: start: 20130729
  8. TRIMETHOPRIM [Concomitant]
     Dates: start: 20131031, end: 20131107

REACTIONS (3)
  - Swelling face [Recovered/Resolved]
  - Peripheral coldness [Unknown]
  - Cyanosis [Unknown]
